FAERS Safety Report 22902753 (Version 3)
Quarter: 2023Q4

REPORT INFORMATION
  Report Type: Spontaneous
  Country: US (occurrence: US)
  Receive Date: 20230904
  Receipt Date: 20231208
  Transmission Date: 20240110
  Serious: No
  Sender: FDA-Public Use
  Company Number: US-PFIZER INC-202300290763

PATIENT
  Age: 37 Year
  Sex: Male
  Weight: 74.84 kg

DRUGS (2)
  1. SOMATROPIN [Suspect]
     Active Substance: SOMATROPIN
     Dosage: 0.2 MG, DAILY
     Route: 058
  2. RETINOL [Concomitant]
     Active Substance: RETINOL
     Dosage: UNK

REACTIONS (2)
  - Acne [Not Recovered/Not Resolved]
  - Seborrhoea [Unknown]
